FAERS Safety Report 4865404-1 (Version None)
Quarter: 2005Q4

REPORT INFORMATION
  Report Type: 
  Country: None (occurrence: None)
  Receive Date: 20051219
  Receipt Date: 20051004
  Transmission Date: 20060501
  Serious: Yes (Death)
  Sender: FDA-Public Use
  Company Number: 2005S1000833

PATIENT
  Age: 5 Day
  Sex: Female

DRUGS (8)
  1. INOMAX [Suspect]
     Indication: LUNG DISORDER
     Dosage: 5 PPM; CONT
     Route: 055
     Dates: start: 20050930, end: 20051006
  2. INOMAX [Suspect]
     Indication: PROPHYLAXIS
     Dosage: 5 PPM; CONT
     Route: 055
     Dates: start: 20050930, end: 20051006
  3. SUFENTANIL (SUFENTANIL) [Concomitant]
  4. MIDAZOLAM HCL [Concomitant]
  5. KETAMINE (KETAMINE) [Concomitant]
  6. IBUPROFEN [Concomitant]
  7. ............ [Concomitant]
  8. ................. [Concomitant]

REACTIONS (15)
  - C-REACTIVE PROTEIN INCREASED [None]
  - CARDIAC ARREST NEONATAL [None]
  - DYSKINESIA [None]
  - HYPERKALAEMIA [None]
  - IMMATURE RESPIRATORY SYSTEM [None]
  - INTRAVENTRICULAR HAEMORRHAGE NEONATAL [None]
  - LARGE INTESTINE PERFORATION [None]
  - NECROSIS [None]
  - NECROTISING COLITIS [None]
  - NECROTISING GASTRITIS [None]
  - NEONATAL DISORDER [None]
  - PERITONITIS [None]
  - PNEUMOTHORAX [None]
  - RENAL FAILURE [None]
  - SKIN DISCOLOURATION [None]
